FAERS Safety Report 15796269 (Version 1)
Quarter: 2019Q1

REPORT INFORMATION
  Report Type: Other
  Country: RU (occurrence: RU)
  Receive Date: 20190108
  Receipt Date: 20190108
  Transmission Date: 20190417
  Serious: Yes (Other)
  Sender: FDA-Public Use
  Company Number: RU-DEXPHARM-20181001

PATIENT
  Age: 55 Year
  Sex: Male

DRUGS (8)
  1. OMEPRAZOLE. [Suspect]
     Active Substance: OMEPRAZOLE
  2. CLOPIDOGREL [Interacting]
     Active Substance: CLOPIDOGREL BISULFATE
     Indication: ARTERIOSCLEROSIS
  3. VILDAGLIPTIN [Concomitant]
     Active Substance: VILDAGLIPTIN
  4. EZETIMIBE. [Concomitant]
     Active Substance: EZETIMIBE
  5. INDAPAMIDE. [Concomitant]
     Active Substance: INDAPAMIDE
  6. ASPIRIN. [Concomitant]
     Active Substance: ASPIRIN
  7. LOSARTAN. [Concomitant]
     Active Substance: LOSARTAN
  8. SOTALOL HYDROCHLORIDE. [Concomitant]
     Active Substance: SOTALOL HYDROCHLORIDE

REACTIONS (1)
  - Drug interaction [Unknown]
